FAERS Safety Report 12738309 (Version 13)
Quarter: 2017Q2

REPORT INFORMATION
  Report Type: Spontaneous
  Country: US (occurrence: US)
  Receive Date: 20160913
  Receipt Date: 20170616
  Transmission Date: 20170830
  Serious: No
  Sender: FDA-Public Use
  Company Number: US-PFIZER INC-2016407888

PATIENT
  Age: 67 Year
  Sex: Male
  Weight: 77 kg

DRUGS (10)
  1. SUTENT [Suspect]
     Active Substance: SUNITINIB MALATE
     Dosage: 50 MG, CYCLIC (DAILY FOR 2 WEEKS ON/ 1 WEEK OFF)
     Dates: start: 20170116
  2. STOOL SOFTENER (DOCUSATE) [Concomitant]
     Active Substance: DOCUSATE
     Dosage: UNK
  3. SUTENT [Suspect]
     Active Substance: SUNITINIB MALATE
     Indication: RENAL CANCER METASTATIC
     Dosage: 50 MG, CYCLIC (DAILY FOR 2 WEEKS ON AND 1 WEEK OFF)
     Dates: start: 20160826, end: 20161208
  4. LIPITOR [Concomitant]
     Active Substance: ATORVASTATIN CALCIUM
     Dosage: UNK
  5. MIRALAX [Concomitant]
     Active Substance: POLYETHYLENE GLYCOL 3350
     Dosage: UNK
  6. HYDROCORTISONE. [Concomitant]
     Active Substance: HYDROCORTISONE
     Dosage: UNK
  7. LISINOPRIL. [Concomitant]
     Active Substance: LISINOPRIL
     Dosage: UNK
  8. BABY ASPIRIN [Concomitant]
     Active Substance: ASPIRIN
     Dosage: UNK
  9. XANAX [Concomitant]
     Active Substance: ALPRAZOLAM
     Dosage: UNK
  10. PLAQUENIL [Concomitant]
     Active Substance: HYDROXYCHLOROQUINE SULFATE
     Dosage: UNK

REACTIONS (30)
  - Red blood cell count decreased [Unknown]
  - Oral discomfort [Unknown]
  - Diarrhoea [Recovering/Resolving]
  - Oral pain [Not Recovered/Not Resolved]
  - White blood cell count decreased [Unknown]
  - Glossodynia [Unknown]
  - Malaise [Not Recovered/Not Resolved]
  - Feeling cold [Not Recovered/Not Resolved]
  - Constipation [Recovered/Resolved]
  - Localised oedema [Unknown]
  - Asthenia [Not Recovered/Not Resolved]
  - Dysgeusia [Recovering/Resolving]
  - Ageusia [Recovered/Resolved]
  - Stomatitis [Unknown]
  - Tongue discomfort [Unknown]
  - Hyperkeratosis [Unknown]
  - Fatigue [Not Recovered/Not Resolved]
  - Antinuclear antibody increased [Unknown]
  - Urethral pain [Unknown]
  - Blood sodium decreased [Unknown]
  - Decreased appetite [Recovering/Resolving]
  - Platelet count decreased [Unknown]
  - Skin lesion [Unknown]
  - Upper respiratory tract infection [Not Recovered/Not Resolved]
  - Productive cough [Not Recovered/Not Resolved]
  - Incision site pain [Unknown]
  - Swelling [Unknown]
  - Procedural pain [Recovered/Resolved]
  - Influenza like illness [Not Recovered/Not Resolved]
  - Adrenal disorder [Unknown]

NARRATIVE: CASE EVENT DATE: 20160826
